FAERS Safety Report 18135875 (Version 2)
Quarter: 2020Q3

REPORT INFORMATION
  Report Type: Spontaneous
  Country: US (occurrence: US)
  Receive Date: 20200811
  Receipt Date: 20200826
  Transmission Date: 20201103
  Serious: Yes (Other)
  Sender: FDA-Public Use
  Company Number: US-TEVA-2020-US-1812714

PATIENT
  Age: 14 Year
  Sex: Female

DRUGS (1)
  1. CIS?RETINOIC ACID [Suspect]
     Active Substance: UNSPECIFIED INGREDIENT
     Indication: NEUROBLASTOMA
     Dosage: 160 MG/M2 DAILY; DOSE: 160 MG/M2/DAY FOR 2 WEEKS A MONTH, SCHEDULED TO BE ADMINISTERED FOR 6 MONTHS
     Route: 065

REACTIONS (2)
  - Growth failure [Unknown]
  - Epiphyseal injury [Unknown]
